FAERS Safety Report 4442040-2 (Version None)
Quarter: 2004Q3

REPORT INFORMATION
  Report Type: 
  Country: None (occurrence: None)
  Receive Date: 20040901
  Receipt Date: 20040818
  Transmission Date: 20050211
  Serious: Yes (Other)
  Sender: FDA-Public Use
  Company Number: DEU-2004-0000944

PATIENT
  Age: 42 Month
  Sex: Male

DRUGS (1)
  1. POVIDONE IODINE [Suspect]
     Indication: POSTOPERATIVE CARE
     Dosage: 40 MG, DAILY, TOPICAL
     Route: 061
     Dates: start: 20040520, end: 20040530

REACTIONS (5)
  - CHEILITIS [None]
  - CONJUNCTIVITIS [None]
  - EXANTHEM [None]
  - PYREXIA [None]
  - RASH PUSTULAR [None]
